FAERS Safety Report 8101186-8 (Version None)
Quarter: 2012Q1

REPORT INFORMATION
  Report Type: 
  Country: None (occurrence: None)
  Receive Date: 20120129
  Receipt Date: 20111013
  Transmission Date: 20120608
  Serious: No
  Sender: FDA-Public Use
  Company Number: US-ABBOTT-11P-163-0863901-00

PATIENT
  Age: 62 Year
  Sex: Male

DRUGS (3)
  1. SORIATANE [Concomitant]
     Indication: PSORIASIS
  2. METHOTREXATE [Concomitant]
     Indication: PSORIASIS
  3. HUMIRA [Suspect]
     Indication: PSORIASIS
     Dates: start: 20110715

REACTIONS (1)
  - DRUG INEFFECTIVE [None]
